FAERS Safety Report 4589223-9 (Version None)
Quarter: 2005Q1

REPORT INFORMATION
  Report Type: 
  Country: None (occurrence: None)
  Receive Date: 20050217
  Receipt Date: 20050217
  Transmission Date: 20050727
  Serious: Yes (Other)
  Sender: FDA-Public Use
  Company Number: None

PATIENT
  Weight: 159.8 kg

DRUGS (4)
  1. LAMIVUDINE [Suspect]
     Indication: HEPATITIS B
     Dosage: 100 MG QD ORAL
     Route: 048
     Dates: start: 20040929, end: 20041210
  2. BENZONATATE [Concomitant]
  3. LORATADINE [Concomitant]
  4. OMEPRAZOLE [Concomitant]

REACTIONS (1)
  - ALOPECIA [None]
